FAERS Safety Report 25311349 (Version 1)
Quarter: 2025Q2

REPORT INFORMATION
  Report Type: Spontaneous
  Country: GB (occurrence: GB)
  Receive Date: 20250514
  Receipt Date: 20250514
  Transmission Date: 20250717
  Serious: Yes (Hospitalization, Other)
  Sender: TEVA
  Company Number: None

PATIENT
  Age: 34 Year
  Sex: Female

DRUGS (7)
  1. ESCITALOPRAM [Suspect]
     Active Substance: ESCITALOPRAM OXALATE
     Indication: Product used for unknown indication
     Dosage: HELD LOW SODIUM,10 MG TABLETS
     Route: 065
  2. ENOXAPARIN [Concomitant]
     Active Substance: ENOXAPARIN
     Indication: Product used for unknown indication
     Route: 065
  3. FOLIC ACID [Concomitant]
     Active Substance: FOLIC ACID
     Indication: Product used for unknown indication
     Dosage: ...FOR 4 MONTHS
     Route: 065
  4. FERROUS SULFATE [Concomitant]
     Active Substance: FERROUS SULFATE
     Indication: Product used for unknown indication
     Dosage: ... AT LUNCHTIME - PATIENT STATES DOESN^T TAKE AS IT MAKES HER FEEL DIZZY. - HAS BEEN TAKING AS IP
     Route: 065
  5. QUETIAPINE [Concomitant]
     Active Substance: QUETIAPINE
     Indication: Product used for unknown indication
     Dosage: ...AT NIGHT
     Route: 065
  6. QUETIAPINE [Concomitant]
     Active Substance: QUETIAPINE
     Indication: Product used for unknown indication
     Dosage: ...PATIENT STATES HAS ONLY BEEN TAKING 25MG MANE AS DIDN^T REALISE IT WAS PRESCRIBED TWICE A DAY
     Route: 065
  7. CEPHALEXIN [Concomitant]
     Active Substance: CEPHALEXIN
     Indication: Product used for unknown indication
     Dosage: ADDITIONAL MEDICATION PRESCRIBED ON AUH TTO 22/01/25?... FOR 8 MORE DOSES - PATIENT STATES COMPLE...
     Route: 065

REACTIONS (1)
  - Hyponatraemia [Recovered/Resolved]
